FAERS Safety Report 7735939-2 (Version None)
Quarter: 2011Q3

REPORT INFORMATION
  Report Type: 
  Country: None (occurrence: None)
  Receive Date: 20110817
  Receipt Date: 20110322
  Transmission Date: 20111222
  Serious: No
  Sender: FDA-Public Use
  Company Number: 20107990

PATIENT
  Age: 21 Year
  Sex: Male

DRUGS (1)
  1. LIORESAL [Suspect]
     Indication: MUSCLE SPASTICITY
     Dosage: 299.8 MCG, DAILY, INTRATHECAL
     Route: 037

REACTIONS (4)
  - DRUG EFFECT DECREASED [None]
  - MUSCLE TIGHTNESS [None]
  - MUSCLE SPASTICITY [None]
  - DRUG INEFFECTIVE [None]
